FAERS Safety Report 6394089-0 (Version None)
Quarter: 2009Q4

REPORT INFORMATION
  Report Type: 
  Country: None (occurrence: None)
  Receive Date: 20091008
  Receipt Date: 20091003
  Transmission Date: 20100525
  Serious: Yes (Hospitalization)
  Sender: FDA-Public Use
  Company Number: CHPA2009US16903

PATIENT
  Sex: Female

DRUGS (1)
  1. CONTROL PLP (NCH) [Suspect]
     Indication: SMOKING CESSATION THERAPY
     Dosage: 21 MG, QD
     Route: 062
     Dates: start: 20050101, end: 20050101

REACTIONS (1)
  - HYPERTENSION [None]
